FAERS Safety Report 8433670-1 (Version None)
Quarter: 2012Q2

REPORT INFORMATION
  Report Type: 
  Country: None (occurrence: None)
  Receive Date: 20120613
  Receipt Date: 20120531
  Transmission Date: 20120825
  Serious: No
  Sender: FDA-Public Use
  Company Number: US-ASTRAZENECA-2012SE36444

PATIENT
  Age: 70 Year
  Sex: Female

DRUGS (2)
  1. NEXIUM [Suspect]
     Route: 048
  2. PROTONIX [Concomitant]
     Route: 048
     Dates: start: 20120327

REACTIONS (4)
  - FOOD POISONING [None]
  - GASTRIC ULCER [None]
  - OESOPHAGEAL FOOD IMPACTION [None]
  - ADVERSE EVENT [None]
